FAERS Safety Report 5981155-4 (Version None)
Quarter: 2008Q4

REPORT INFORMATION
  Report Type: 
  Country: None (occurrence: None)
  Receive Date: 20081205
  Receipt Date: 20081201
  Transmission Date: 20090506
  Serious: Yes (Death, Hospitalization)
  Sender: FDA-Public Use
  Company Number: A0756214A

PATIENT
  Age: 74 Year
  Sex: Male

DRUGS (8)
  1. ARIXTRA [Suspect]
     Indication: DEEP VEIN THROMBOSIS
     Dosage: 7.5MG PER DAY
     Route: 058
     Dates: start: 20081014
  2. LASIX [Concomitant]
  3. HYDROCODONE BITARTRATE [Concomitant]
  4. PRILOSEC [Concomitant]
  5. FISH OIL [Concomitant]
  6. SALSALATE [Concomitant]
  7. LISINOPRIL [Concomitant]
  8. TERAZOSIN HCL [Concomitant]

REACTIONS (1)
  - NEOPLASM MALIGNANT [None]
